FAERS Safety Report 12597973 (Version 1)
Quarter: 2016Q3

REPORT INFORMATION
  Report Type: Spontaneous
  Country: US (occurrence: US)
  Receive Date: 20160726
  Receipt Date: 20160726
  Transmission Date: 20161109
  Serious: Yes (Other)
  Sender: FDA-Public Use
  Company Number: US-SA-2016SA135091

PATIENT
  Sex: Female

DRUGS (2)
  1. OXALIPLATIN. [Suspect]
     Active Substance: OXALIPLATIN
     Route: 065
  2. SANDOSTATIN LAR DEPOT [Suspect]
     Active Substance: OCTREOTIDE ACETATE
     Route: 065

REACTIONS (6)
  - Hypoacusis [Unknown]
  - Malaise [Unknown]
  - Alopecia [Unknown]
  - Cerebrovascular accident [Unknown]
  - Amnesia [Unknown]
  - Memory impairment [Unknown]
